FAERS Safety Report 4301240-2 (Version None)
Quarter: 2004Q1

REPORT INFORMATION
  Report Type: 
  Country: None (occurrence: None)
  Receive Date: 20040218
  Receipt Date: 20031022
  Transmission Date: 20041129
  Serious: No
  Sender: FDA-Public Use
  Company Number: 2003-10-2395

PATIENT
  Age: 44 Year
  Sex: Female
  Weight: 60.782 kg

DRUGS (7)
  1. PEG-INTRON [Suspect]
     Indication: HEPATITIS C
     Dosage: 120 MU QWK
     Route: 058
     Dates: start: 20030201
  2. REBETOL [Suspect]
     Indication: HEPATITIS C
     Dosage: 1000 MG QD
     Route: 048
     Dates: start: 20030201
  3. LEXAPRO [Concomitant]
     Indication: ANXIETY
     Dosage: 15 MG
     Dates: start: 20021201
  4. LEXAPRO [Concomitant]
     Indication: DEPRESSION
     Dosage: 15 MG
     Dates: start: 20021201
  5. WELLBUTRIN [Concomitant]
     Indication: SMOKING CESSATION THERAPY
     Dosage: 300 MG
     Dates: start: 20030801
  6. NEUPOGEN [Concomitant]
     Indication: WHITE BLOOD CELL COUNT
     Dosage: 480 MCG QWK
     Dates: start: 20030701
  7. EPOGEN [Concomitant]
     Indication: ANAEMIA
     Dosage: .75 QWK
     Dates: start: 20030901

REACTIONS (1)
  - TOOTH DISORDER [None]
